FAERS Safety Report 6235034-8 (Version None)
Quarter: 2009Q2

REPORT INFORMATION
  Report Type: 
  Country: None (occurrence: None)
  Receive Date: 20090617
  Receipt Date: 20071010
  Transmission Date: 20091009
  Serious: No
  Sender: FDA-Public Use
  Company Number: 268367

PATIENT
  Age: 65 Year
  Sex: Female

DRUGS (1)
  1. LEVEMIR [Suspect]
     Indication: INSULIN-REQUIRING TYPE 2 DIABETES MELLITUS
     Dates: start: 20060101

REACTIONS (5)
  - BLOOD GLUCOSE INCREASED [None]
  - INJECTION SITE HAEMATOMA [None]
  - INJECTION SITE MASS [None]
  - RASH [None]
  - RASH MACULAR [None]
